FAERS Safety Report 12834816 (Version 4)
Quarter: 2017Q3

REPORT INFORMATION
  Report Type: Spontaneous
  Country: US (occurrence: US)
  Receive Date: 20161010
  Receipt Date: 20170719
  Transmission Date: 20171127
  Serious: Yes (Death, Other)
  Sender: FDA-Public Use
  Company Number: US-PFIZER INC-2016468844

PATIENT
  Age: 70 Year
  Sex: Female

DRUGS (15)
  1. BABY ASPIRIN [Concomitant]
     Active Substance: ASPIRIN
     Dosage: 81 MG, DAILY
  2. ATENOLOL. [Concomitant]
     Active Substance: ATENOLOL
     Dosage: 25 MG, DAILY
     Route: 048
  3. LOVASTATIN. [Concomitant]
     Active Substance: LOVASTATIN
     Dosage: 20 MG, DAILY
     Route: 048
  4. VITAMIN D3 [Concomitant]
     Active Substance: CHOLECALCIFEROL
     Dosage: 1000 UNITS DAILY
     Route: 048
  5. LASIX [Concomitant]
     Active Substance: FUROSEMIDE
     Dosage: UNK
  6. ACETAMINOPHEN W/HYDROCODONE [Concomitant]
     Active Substance: ACETAMINOPHEN\HYDROCODONE
     Indication: PAIN
     Dosage: 1 DF, AS NEEDED (1 TAB ORAL 1 PILL EVERY 4 HRS)
     Route: 048
     Dates: start: 20140414
  7. LYRICA [Suspect]
     Active Substance: PREGABALIN
     Dosage: 75 MG, 2X/DAY
  8. HYDROMORPHONE [Concomitant]
     Active Substance: HYDROMORPHONE
     Indication: PAIN
     Dosage: 4 MG, EVERY 4 HRS (1 TAB ORAL)
     Route: 048
     Dates: start: 20160816
  9. ALPRAZOLAM. [Concomitant]
     Active Substance: ALPRAZOLAM
     Indication: ANXIETY
     Dosage: UNK UNK, AS NEEDED (0.5-1 TAB EVERY 6-8 HRS AS NEEDED)
     Route: 048
     Dates: start: 20150219
  10. LOMOTIL [Concomitant]
     Active Substance: ATROPINE SULFATE\DIPHENOXYLATE HYDROCHLORIDE
     Indication: DIARRHOEA
     Dosage: UNK, (2 TAB ORAL AFTER 1ST LOOSE STOOL- THEN 1 TAB AFTER EACH STOOL)
     Route: 048
     Dates: start: 20160413
  11. ALPRAZOLAM. [Concomitant]
     Active Substance: ALPRAZOLAM
     Indication: INSOMNIA
  12. BUPROBAN [Concomitant]
     Active Substance: BUPROPION HYDROCHLORIDE
     Indication: ARTHRITIS
     Dosage: 150 MG, DAILY, (ONLY W INCREASED ARTHRITIS IN KNEES)
  13. LYRICA [Suspect]
     Active Substance: PREGABALIN
     Dosage: 75 MG, 3X/DAY
     Route: 048
     Dates: start: 20160930
  14. NABUMETONE. [Concomitant]
     Active Substance: NABUMETONE
     Dosage: 500 MG, AS NEEDED (TWICE A DAY)
  15. CYMBALTA [Concomitant]
     Active Substance: DULOXETINE HYDROCHLORIDE
     Dosage: 30 MG, DAILY
     Route: 048
     Dates: start: 20160519

REACTIONS (5)
  - Death [Fatal]
  - Drug dependence [Unknown]
  - Visual impairment [Unknown]
  - Drug ineffective [Unknown]
  - Neuropathy peripheral [Recovered/Resolved]

NARRATIVE: CASE EVENT DATE: 20170714
